FAERS Safety Report 5651885-2 (Version None)
Quarter: 2008Q1

REPORT INFORMATION
  Report Type: 
  Country: None (occurrence: None)
  Receive Date: 20080304
  Receipt Date: 20080221
  Transmission Date: 20080703
  Serious: Yes (Life-Threatening, Hospitalization, Congenital Anomaly, Other)
  Sender: FDA-Public Use
  Company Number: 2008VX000419

PATIENT
  Sex: Female

DRUGS (1)
  1. MESTINON [Suspect]
     Indication: MYASTHENIA GRAVIS
     Dosage: 60 MG;TID

REACTIONS (8)
  - ASTHMA [None]
  - CONGENITAL GENITAL MALFORMATION FEMALE [None]
  - DRUG EXPOSURE DURING PREGNANCY [None]
  - ILL-DEFINED DISORDER [None]
  - PREMATURE BABY [None]
  - UNDERWEIGHT [None]
  - URINARY TRACT MALFORMATION [None]
  - VAGINAL DISORDER [None]
